FAERS Safety Report 9476574 (Version 4)
Quarter: 2013Q4

REPORT INFORMATION
  Report Type: Report from Study
  Country: US (occurrence: US)
  Receive Date: 20130826
  Receipt Date: 20131015
  Transmission Date: 20140711
  Serious: Yes (Hospitalization)
  Sender: FDA-Public Use
  Company Number: US-JNJFOC-20130810416

PATIENT
  Age: 13 Year
  Sex: Female
  Weight: 42.4 kg

DRUGS (9)
  1. REMICADE [Suspect]
     Indication: INFLAMMATORY BOWEL DISEASE
     Route: 042
     Dates: start: 20110914, end: 20130206
  2. REMICADE [Suspect]
     Indication: INFLAMMATORY BOWEL DISEASE
     Dosage: 190 MG
     Route: 042
     Dates: start: 20130829
  3. REMICADE [Suspect]
     Indication: INFLAMMATORY BOWEL DISEASE
     Dosage: 190 MG
     Route: 042
     Dates: start: 20130913
  4. REMICADE [Suspect]
     Indication: INFLAMMATORY BOWEL DISEASE
     Dosage: 190 MG
     Route: 042
     Dates: start: 20130817
  5. CIMZIA [Concomitant]
     Route: 065
     Dates: start: 2013
  6. CIMZIA [Concomitant]
     Route: 065
     Dates: start: 201307
  7. METHOTREXATE [Concomitant]
     Route: 065
     Dates: start: 201307
  8. PREDNISONE [Concomitant]
     Route: 065
  9. PRILOSEC [Concomitant]
     Route: 065

REACTIONS (2)
  - Arthritis [Recovered/Resolved]
  - Crohn^s disease [Recovered/Resolved]
